FAERS Safety Report 17568569 (Version 5)
Quarter: 2021Q2

REPORT INFORMATION
  Report Type: Spontaneous
  Country: US (occurrence: US)
  Receive Date: 20200320
  Receipt Date: 20210604
  Transmission Date: 20210716
  Serious: Yes (Hospitalization)
  Sender: FDA-Public Use
  Company Number: US-VIFOR (INTERNATIONAL) INC.-VIT-2020-04704

PATIENT
  Age: 74 Year
  Sex: Male
  Weight: 64.01 kg

DRUGS (15)
  1. CREON [Concomitant]
     Active Substance: PANCRELIPASE AMYLASE\PANCRELIPASE LIPASE\PANCRELIPASE PROTEASE
     Route: 048
  2. ASPIRIN. [Concomitant]
     Active Substance: ASPIRIN
     Dosage: 30 TABLETS
     Route: 048
  3. PROTONIX [Concomitant]
     Active Substance: PANTOPRAZOLE SODIUM
     Dosage: 30 TABLETS
     Route: 048
  4. LIPITOR [Concomitant]
     Active Substance: ATORVASTATIN CALCIUM
     Dosage: 90 TABLETS
     Route: 048
  5. XARELTO [Concomitant]
     Active Substance: RIVAROXABAN
     Route: 048
  6. CLARITIN [Concomitant]
     Active Substance: LORATADINE
     Dosage: 30 TABLETS
     Route: 048
  7. ZENPEP [Concomitant]
     Active Substance: PANCRELIPASE AMYLASE\PANCRELIPASE LIPASE\PANCRELIPASE PROTEASE
     Dosage: 20,000 UNITS? 63,000 UNITS? 84,000 UNITS
     Route: 048
  8. CYCLOBENZAPRINE. [Concomitant]
     Active Substance: CYCLOBENZAPRINE
     Route: 048
  9. DICYCLOMINE [Concomitant]
     Active Substance: DICYCLOMINE HYDROCHLORIDE
     Route: 048
  10. VELTASSA [Suspect]
     Active Substance: PATIROMER
     Route: 048
  11. BUMETANIDE. [Concomitant]
     Active Substance: BUMETANIDE
     Dosage: 30 TABLETS
     Route: 048
  12. VELTASSA [Suspect]
     Active Substance: PATIROMER
     Indication: HYPERKALAEMIA
     Route: 048
     Dates: start: 20190731
  13. VELTASSA [Suspect]
     Active Substance: PATIROMER
     Route: 048
  14. VITAMIN D3 [Concomitant]
     Active Substance: CHOLECALCIFEROL
     Route: 048
  15. COREG [Concomitant]
     Active Substance: CARVEDILOL
     Dosage: 60 TABLETS
     Route: 048

REACTIONS (4)
  - Gastric operation [Unknown]
  - Thrombosis [Unknown]
  - Off label use [Unknown]
  - Oropharyngeal discomfort [Unknown]

NARRATIVE: CASE EVENT DATE: 2019
